FAERS Safety Report 5882446-8 (Version None)
Quarter: 2008Q3

REPORT INFORMATION
  Report Type: 
  Country: None (occurrence: None)
  Receive Date: 20080913
  Receipt Date: 20080805
  Transmission Date: 20090109
  Serious: No
  Sender: FDA-Public Use
  Company Number: US-ABBOTT-08P-163-0469121-00

PATIENT
  Sex: Female
  Weight: 65.83 kg

DRUGS (4)
  1. HUMIRA [Suspect]
     Indication: CROHN'S DISEASE
     Dosage: 80 MG, INITIALLY
     Route: 050
     Dates: start: 20080822
  2. HUMIRA [Suspect]
     Dosage: SHOT (ROUTE)
  3. CYANOCOBALAMIN-TANNIN COMPLEX [Concomitant]
     Indication: VITAMIN SUPPLEMENTATION
     Dosage: MONTHLY
     Route: 050
  4. BIRTH CONTROL [Concomitant]
     Indication: CONTRACEPTION
     Route: 048

REACTIONS (1)
  - ACCIDENTAL EXPOSURE [None]
